FAERS Safety Report 5072037-3 (Version None)
Quarter: 2006Q3

REPORT INFORMATION
  Report Type: 
  Country: None (occurrence: None)
  Receive Date: 20060807
  Receipt Date: 20060802
  Transmission Date: 20061208
  Serious: Yes (Life-Threatening, Hospitalization)
  Sender: FDA-Public Use
  Company Number: ES-AVENTIS-200614202EU

PATIENT
  Age: 76 Year
  Sex: Male

DRUGS (5)
  1. CLEXANE [Suspect]
     Indication: PHLEBITIS
     Route: 058
     Dates: start: 20051107, end: 20051121
  2. CLEXANE [Suspect]
     Indication: THROMBOPHLEBITIS
     Route: 058
     Dates: start: 20051107, end: 20051121
  3. AUGMENTIN '125' [Suspect]
     Indication: PHLEBITIS
     Dosage: DOSE: 1000/62.5
     Route: 048
     Dates: start: 20051107, end: 20051121
  4. AUGMENTIN '125' [Suspect]
     Indication: THROMBOPHLEBITIS
     Dosage: DOSE: 1000/62.5
     Route: 048
     Dates: start: 20051107, end: 20051121
  5. NORMULEN [Suspect]
     Route: 048
     Dates: start: 20051107, end: 20051117

REACTIONS (1)
  - HEPATITIS CHOLESTATIC [None]
